FAERS Safety Report 9908431 (Version 1)
Quarter: 2014Q1

REPORT INFORMATION
  Report Type: Report from Study
  Country: FR (occurrence: FR)
  Receive Date: 20140219
  Receipt Date: 20140219
  Transmission Date: 20141002
  Serious: Yes (Hospitalization)
  Sender: FDA-Public Use
  Company Number: FR-MALLINCKRODT-T201401230

PATIENT
  Age: 51 Year
  Sex: Male

DRUGS (1)
  1. OPTIJECT 350 [Suspect]
     Indication: COMPUTERISED TOMOGRAM ABDOMEN
     Dosage: UNK, AUTOMATIC INJECTION OF 3.0 ML/SEC
     Route: 042
     Dates: start: 20140108, end: 20140108

REACTIONS (3)
  - Type III immune complex mediated reaction [Unknown]
  - Malaise [Unknown]
  - Hyperthermia [Unknown]
